FAERS Safety Report 4267818-X (Version None)
Quarter: 2004Q1

REPORT INFORMATION
  Report Type: 
  Country: None (occurrence: None)
  Receive Date: 20040109
  Receipt Date: 20031230
  Transmission Date: 20041129
  Serious: Yes (Hospitalization)
  Sender: FDA-Public Use
  Company Number: TW-GLAXOSMITHKLINE-A0490820A

PATIENT
  Age: 73 Year
  Sex: Male

DRUGS (6)
  1. VINORELBINE [Suspect]
     Indication: NON-SMALL CELL LUNG CANCER
     Dosage: 100MG SEE DOSAGE TEXT
     Route: 048
     Dates: start: 20031119
  2. CISPLATIN [Suspect]
     Indication: NON-SMALL CELL LUNG CANCER
     Dosage: 139MG SEE DOSAGE TEXT
     Route: 042
     Dates: start: 20031119
  3. AMLODIPINE BESYLATE [Concomitant]
     Dosage: 5MG PER DAY
     Route: 048
     Dates: start: 20031111
  4. MEDROXYPROGESTERONE [Concomitant]
     Dosage: 500MG PER DAY
     Route: 048
     Dates: start: 20031124
  5. MORPHINE [Concomitant]
     Route: 048
     Dates: start: 20031111
  6. ISOSORBIDE [Concomitant]
     Route: 048
     Dates: start: 20031111

REACTIONS (2)
  - DECREASED APPETITE [None]
  - RENAL FAILURE [None]
